FAERS Safety Report 5236692-7 (Version None)
Quarter: 2007Q1

REPORT INFORMATION
  Report Type: 
  Country: None (occurrence: None)
  Receive Date: 20070209
  Receipt Date: 20070130
  Transmission Date: 20070707
  Serious: Yes (Life-Threatening, Hospitalization, Other)
  Sender: FDA-Public Use
  Company Number: 2007-00264

PATIENT
  Age: 72 Year
  Sex: Male
  Weight: 70 kg

DRUGS (3)
  1. VELCADE [Suspect]
     Indication: MULTIPLE MYELOMA
  2. TYLEX (PHENYLEPHRINE HYDROCHLORIDE, PARACETAMOL, CARBINOXAMINE MALEATE [Concomitant]
  3. OMEPRAZOLE [Concomitant]

REACTIONS (6)
  - ATRIAL FIBRILLATION [None]
  - ATRIOVENTRICULAR BLOCK [None]
  - EJECTION FRACTION DECREASED [None]
  - LUNG INFILTRATION [None]
  - SEPSIS [None]
  - URINARY TRACT INFECTION [None]
